FAERS Safety Report 7039675-X (Version None)
Quarter: 2010Q4

REPORT INFORMATION
  Report Type: 
  Country: None (occurrence: None)
  Receive Date: 20101012
  Receipt Date: 20101005
  Transmission Date: 20110411
  Serious: Yes (Other)
  Sender: FDA-Public Use
  Company Number: B0678943A

PATIENT
  Sex: Male

DRUGS (1)
  1. AUGMENTIN '125' [Suspect]
     Indication: OTITIS MEDIA
     Dosage: 1.5ML THREE TIMES PER DAY
     Route: 065
     Dates: start: 20100901

REACTIONS (2)
  - AGGRESSION [None]
  - GASTROENTERITIS BACTERIAL [None]
